FAERS Safety Report 23524630 (Version 3)
Quarter: 2024Q1

REPORT INFORMATION
  Report Type: Report from Study
  Country: GB (occurrence: GB)
  Receive Date: 20240215
  Receipt Date: 20240313
  Transmission Date: 20240409
  Serious: Yes (Hospitalization, Other)
  Sender: FDA-Public Use
  Company Number: GB-ABBVIE-5627490

PATIENT
  Age: 67 Year
  Sex: Male

DRUGS (7)
  1. CARBIDOPA\LEVODOPA [Suspect]
     Active Substance: CARBIDOPA\LEVODOPA
     Indication: Parkinson^s disease
     Dosage: 20MGS/5MGS; 9ML BOLUS IN THE MORNING AND 5.5ML/HR OVER 16 HOURS
     Route: 050
  2. CARBIDOPA\LEVODOPA [Suspect]
     Active Substance: CARBIDOPA\LEVODOPA
  3. CARBIDOPA\LEVODOPA [Concomitant]
     Active Substance: CARBIDOPA\LEVODOPA
     Indication: Product used for unknown indication
     Dosage: 125MG X1 AT 7PM
     Route: 065
  4. CARBIDOPA\LEVODOPA [Concomitant]
     Active Substance: CARBIDOPA\LEVODOPA
     Indication: Product used for unknown indication
     Dosage: 125MG X2 (250MG) AT 8AM, 11.30AM AND 3PM
     Route: 065
  5. SINEMET CR [Concomitant]
     Active Substance: CARBIDOPA\LEVODOPA
     Indication: Product used for unknown indication
     Dosage: FREQUENCY TEXT: AT 8 PM
     Route: 065
  6. AMOXICILLIN\CLAVULANIC ACID [Concomitant]
     Active Substance: AMOXICILLIN\CLAVULANIC ACID
     Indication: Product used for unknown indication
     Route: 048
  7. BENSERAZIDE HYDROCHLORIDE\LEVODOPA [Concomitant]
     Active Substance: BENSERAZIDE HYDROCHLORIDE\LEVODOPA
     Indication: Product used for unknown indication
     Dosage: 62.5MG?FREQUENCY TEXT: AT 7AM; PRN UP TO 3X A DAY
     Route: 065

REACTIONS (22)
  - Anaemia [Not Recovered/Not Resolved]
  - Dehydration [Not Recovered/Not Resolved]
  - Device dislocation [Not Recovered/Not Resolved]
  - Paranoia [Unknown]
  - Muscle rigidity [Unknown]
  - Blood lactic acid increased [Unknown]
  - Aggression [Unknown]
  - Delirium [Unknown]
  - Hallucination [Unknown]
  - Agitation [Unknown]
  - Acidosis [Unknown]
  - Mobility decreased [Unknown]
  - C-reactive protein increased [Unknown]
  - Hypoperfusion [Unknown]
  - General physical health deterioration [Not Recovered/Not Resolved]
  - Pain in extremity [Unknown]
  - Dyskinesia [Unknown]
  - Suspiciousness [Unknown]
  - Neoplasm malignant [Unknown]
  - Gastric ulcer [Unknown]
  - Device occlusion [Not Recovered/Not Resolved]
  - Muscle spasms [Unknown]

NARRATIVE: CASE EVENT DATE: 20240202
